FAERS Safety Report 19416362 (Version 8)
Quarter: 2021Q4

REPORT INFORMATION
  Report Type: Spontaneous
  Country: JP (occurrence: JP)
  Receive Date: 20210614
  Receipt Date: 20211007
  Transmission Date: 20220303
  Serious: Yes (Death, Hospitalization, Other)
  Sender: FDA-Public Use
  Company Number: JP-PFIZER INC-2021635900

PATIENT
  Age: 70 Year
  Sex: Female
  Weight: 50.2 kg

DRUGS (9)
  1. INLYTA [Suspect]
     Active Substance: AXITINIB
     Indication: Renal cell carcinoma recurrent
     Dosage: 5 MG, 2X/DAY
     Route: 048
     Dates: start: 20210427, end: 20210428
  2. BAVENCIO [Suspect]
     Active Substance: AVELUMAB
     Indication: Renal cell carcinoma recurrent
     Dosage: 500 MG, EVERY 2 WEEKS
     Route: 041
     Dates: start: 20210427, end: 20210427
  3. ALENDRONATE [Concomitant]
     Active Substance: ALENDRONATE SODIUM
     Indication: Osteoporosis
     Dosage: 35 MG, WEEKLY (EVERY MONDAY)
     Route: 048
  4. MAGNESIUM OXIDE [Concomitant]
     Active Substance: MAGNESIUM OXIDE
     Indication: Constipation
     Dosage: 330 MG, 3X/DAY
     Route: 048
  5. TOCOPHERYL NICOTINATE, D-.ALPHA. [Concomitant]
     Active Substance: TOCOPHERYL NICOTINATE, D-.ALPHA.
     Indication: Hyperlipidaemia
     Dosage: 200 MG, 2X/DAY
     Route: 048
  6. ACETAMINOPHEN [Concomitant]
     Active Substance: ACETAMINOPHEN
     Dosage: UNK
     Route: 041
     Dates: start: 20210427, end: 20210427
  7. POLARAMINE [Concomitant]
     Active Substance: DEXCHLORPHENIRAMINE MALEATE
     Dosage: UNK
     Route: 041
     Dates: start: 20210427
  8. CALONAL [Concomitant]
     Active Substance: ACETAMINOPHEN
     Dosage: 500 MG, 2X/DAY
  9. REBAMIPIDE [Concomitant]
     Active Substance: REBAMIPIDE
     Dosage: 100 MG, 2X/DAY

REACTIONS (9)
  - Cerebellar haemorrhage [Fatal]
  - Respiratory arrest [Fatal]
  - Blood pressure increased [Recovered/Resolved with Sequelae]
  - Platelet count decreased [Unknown]
  - Vomiting [Recovering/Resolving]
  - Neoplasm progression [Unknown]
  - Body temperature increased [Recovered/Resolved]
  - Decreased appetite [Unknown]
  - Dizziness [Unknown]

NARRATIVE: CASE EVENT DATE: 20210428
